FAERS Safety Report 19570727 (Version 1)
Quarter: 2021Q3

REPORT INFORMATION
  Report Type: Spontaneous
  Country: DE (occurrence: DE)
  Receive Date: 20210716
  Receipt Date: 20210716
  Transmission Date: 20211014
  Serious: Yes (Other)
  Sender: FDA-Public Use
  Company Number: DE-ASTRAZENECA-2021A620580

PATIENT
  Sex: Female

DRUGS (2)
  1. BENRALIZUMAB. [Suspect]
     Active Substance: BENRALIZUMAB
     Indication: ASTHMA
     Route: 058
  2. DUPILUMAB [Concomitant]
     Active Substance: DUPILUMAB

REACTIONS (1)
  - Respiratory tract infection [Unknown]
